FAERS Safety Report 11362245 (Version 2)
Quarter: 2015Q3

REPORT INFORMATION
  Report Type: Spontaneous
  Country: PL (occurrence: PL)
  Receive Date: 20150810
  Receipt Date: 20150810
  Transmission Date: 20151125
  Serious: Yes (Life-Threatening, Hospitalization, Other)
  Sender: FDA-Public Use
  Company Number: PL-GLENMARK PHARMACEUTICALS EUROPE LIMITED-2015GMK018629

PATIENT
  Age: 4 Year
  Sex: Male

DRUGS (4)
  1. TOPIRAMATE. [Concomitant]
     Active Substance: TOPIRAMATE
     Indication: EPILEPSY
     Dosage: UNK
  2. VALPROIC ACID. [Concomitant]
     Active Substance: VALPROIC ACID
     Indication: EPILEPSY
     Dosage: UNK
  3. LAMOTRIGINE. [Suspect]
     Active Substance: LAMOTRIGINE
     Indication: EPILEPSY
     Dosage: UNK, STARTED 3 WEEKS EARLIER
  4. LEVETIRACETAM. [Concomitant]
     Active Substance: LEVETIRACETAM
     Indication: EPILEPSY
     Dosage: UNK

REACTIONS (6)
  - Seizure [Recovering/Resolving]
  - Enterococcal infection [Recovering/Resolving]
  - Epstein-Barr virus infection [Recovering/Resolving]
  - Device related sepsis [Recovering/Resolving]
  - Multi-organ failure [Recovering/Resolving]
  - Toxic epidermal necrolysis [Recovering/Resolving]
